FAERS Safety Report 7883493-7 (Version None)
Quarter: 2011Q4

REPORT INFORMATION
  Report Type: 
  Country: None (occurrence: None)
  Receive Date: 20111102
  Receipt Date: 20110314
  Transmission Date: 20120403
  Serious: No
  Sender: FDA-Public Use
  Company Number: US-GLAXOSMITHKLINE-A0918028A

PATIENT
  Age: 70 Year
  Sex: Male

DRUGS (3)
  1. PROSCAR [Concomitant]
  2. PROPAFENONE HYDROCHLORIDE [Suspect]
     Indication: ARRHYTHMIA
     Route: 065
  3. RYTHMOL SR [Suspect]
     Indication: ARRHYTHMIA
     Dosage: 325MG TWICE PER DAY
     Route: 048

REACTIONS (2)
  - PRODUCT QUALITY ISSUE [None]
  - DRUG INEFFECTIVE [None]
